FAERS Safety Report 12548259 (Version 1)
Quarter: 2016Q3

REPORT INFORMATION
  Report Type: Spontaneous
  Country: US (occurrence: None)
  Receive Date: 20160711
  Receipt Date: 20160711
  Transmission Date: 20161109
  Serious: Yes (Other)
  Sender: FDA-Public Use
  Company Number: None

PATIENT
  Age: 60 Year
  Sex: Female

DRUGS (18)
  1. VANCOMYCIN [Concomitant]
     Active Substance: VANCOMYCIN
  2. CARDIZEM [Concomitant]
     Active Substance: DILTIAZEM HYDROCHLORIDE
  3. FERROUS SULFATE. [Concomitant]
     Active Substance: FERROUS SULFATE
  4. ISO-BID [Concomitant]
     Active Substance: ISOSORBIDE DINITRATE
  5. TIMONEN [Concomitant]
  6. DITROPAN [Concomitant]
     Active Substance: OXYBUTYNIN CHLORIDE
  7. PIRAPEX [Concomitant]
  8. IRON [Concomitant]
     Active Substance: IRON
  9. FORTEO [Suspect]
     Active Substance: TERIPARATIDE
     Indication: OSTEOPOROSIS
     Route: 058
     Dates: start: 20150109
  10. COLACE [Concomitant]
     Active Substance: DOCUSATE SODIUM
  11. SPIROLACTONE [Concomitant]
     Active Substance: SPIRONOLACTONE
  12. NEURONTIN [Concomitant]
     Active Substance: GABAPENTIN
  13. NYSTATIN. [Concomitant]
     Active Substance: NYSTATIN
  14. LASIX [Concomitant]
     Active Substance: FUROSEMIDE
  15. NEXIUM [Concomitant]
     Active Substance: ESOMEPRAZOLE MAGNESIUM
  16. SYNTHROID [Concomitant]
     Active Substance: LEVOTHYROXINE SODIUM
  17. HUMALOG [Concomitant]
     Active Substance: INSULIN LISPRO
  18. HYDROCHLORIQUINE [Concomitant]

REACTIONS (1)
  - Sepsis [None]

NARRATIVE: CASE EVENT DATE: 20160525
